FAERS Safety Report 15789183 (Version 1)
Quarter: 2019Q1

REPORT INFORMATION
  Report Type: Report from Study
  Country: US (occurrence: US)
  Receive Date: 20190104
  Receipt Date: 20190104
  Transmission Date: 20190417
  Serious: Yes (Death, Hospitalization)
  Sender: FDA-Public Use
  Company Number: US-B.I. PHARMACEUTICALS,INC./RIDGEFIELD-2018-BI-034412

PATIENT
  Age: 69 Year
  Sex: Male
  Weight: 82.1 kg

DRUGS (2)
  1. OFEV [Suspect]
     Active Substance: NINTEDANIB
     Indication: IDIOPATHIC PULMONARY FIBROSIS
     Route: 048
     Dates: start: 20180429
  2. OFEV [Suspect]
     Active Substance: NINTEDANIB
     Dosage: BID ON EVEN DAYS AND QD ON ODD DAYS
     Route: 048
     Dates: start: 20180731

REACTIONS (6)
  - Off label use [Unknown]
  - Death [Fatal]
  - Thrombosis [Unknown]
  - Gastrointestinal haemorrhage [Unknown]
  - Diarrhoea [Not Recovered/Not Resolved]
  - Arthralgia [Not Recovered/Not Resolved]

NARRATIVE: CASE EVENT DATE: 20180630
